FAERS Safety Report 4629315-9 (Version None)
Quarter: 2005Q2

REPORT INFORMATION
  Report Type: 
  Country: None (occurrence: None)
  Receive Date: 20050405
  Receipt Date: 20050324
  Transmission Date: 20051028
  Serious: Yes (Hospitalization, Other)
  Sender: FDA-Public Use
  Company Number: PHBS2005JP02314

PATIENT
  Age: 69 Year
  Sex: Female
  Weight: 54.5 kg

DRUGS (11)
  1. LAMISIL [Suspect]
     Indication: TINEA PEDIS
     Dosage: 125 MG, QD, ORAL
     Route: 048
     Dates: start: 20040604, end: 20041123
  2. LAMISIL [Suspect]
     Indication: TINEA PEDIS
     Dosage: TOPICAL
     Route: 061
     Dates: start: 20040531, end: 20041214
  3. BASEN (VOGLIBOSE) [Suspect]
     Indication: DIABETES MELLITUS
     Dosage: 0.9 MG/DAY,ORAL
     Route: 048
     Dates: start: 20040513, end: 20041222
  4. GLYBURIDE [Suspect]
     Indication: DIABETES MELLITUS
     Dosage: 7.5 MG/DAY, ORAL
     Route: 048
     Dates: start: 20040604, end: 20041222
  5. ACTOS [Suspect]
     Indication: DIABETES MELLITUS
     Dosage: 30 MG/DAY, ORAL
     Route: 048
     Dates: start: 20040604, end: 20041222
  6. ASPIRIN [Suspect]
     Indication: CEREBRAL INFARCTION
     Dosage: 100 MG/DAY, ORAL
     Route: 048
     Dates: start: 20040513, end: 20041222
  7. NIVADIL (NILVADIPINE) [Suspect]
     Indication: HYPERTENSION
     Dosage: 4 MG/DAY,  ORAL
     Route: 048
     Dates: start: 20040520, end: 20041222
  8. BUP-4 (PROPIVERINE HYDROCHLORIDE) [Suspect]
     Dosage: 20 MG/DAY,ORAL
     Route: 048
     Dates: start: 20040513, end: 20041222
  9. CIMETIDINE [Suspect]
     Indication: GASTRITIS
     Dosage: 400 MG/DAY,ORAL
     Route: 048
     Dates: start: 20040513, end: 20041123
  10. SENNOSIDE (SENNOSIDE A+B CALCIUM) [Concomitant]
  11. KAMAG G (MAGNESIUM OXIDE) [Concomitant]

REACTIONS (2)
  - CHROMOSOME ABNORMALITY [None]
  - GRANULOCYTOPENIA [None]
